FAERS Safety Report 23952765 (Version 1)
Quarter: 2024Q2

REPORT INFORMATION
  Report Type: Spontaneous
  Country: CN (occurrence: CN)
  Receive Date: 20240607
  Receipt Date: 20240607
  Transmission Date: 20240715
  Serious: Yes (Other)
  Sender: FDA-Public Use
  Company Number: CN-009507513-2406CHN000800

PATIENT
  Age: 60 Year
  Sex: Male
  Weight: 73.2 kg

DRUGS (2)
  1. CILASTATIN SODIUM\IMIPENEM [Suspect]
     Active Substance: CILASTATIN SODIUM\IMIPENEM
     Indication: Symptomatic treatment
     Dosage: 1 GRAM; TID
     Route: 041
     Dates: start: 20240425, end: 20240504
  2. LINEZOLID [Suspect]
     Active Substance: LINEZOLID
     Indication: Symptomatic treatment
     Dosage: 300 ML/ BID
     Route: 041
     Dates: start: 20240427, end: 20240504

REACTIONS (2)
  - Hyperpyrexia [Unknown]
  - Drug eruption [Recovering/Resolving]

NARRATIVE: CASE EVENT DATE: 20240502
